FAERS Safety Report 19967749 (Version 1)
Quarter: 2021Q4

REPORT INFORMATION
  Report Type: Spontaneous
  Country: US (occurrence: US)
  Receive Date: 20211018
  Receipt Date: 20211018
  Transmission Date: 20220303
  Serious: Yes (Disabling, Other)
  Sender: FDA-Public Use
  Company Number: None

PATIENT
  Age: 27 Year
  Sex: Male
  Weight: 103.5 kg

DRUGS (2)
  1. DEXTROAMPHET SACCHARAT, AMPHET ASPARTATE, DEXTROAMPHET SULFATE AND AMP [Suspect]
     Active Substance: AMPHETAMINE ASPARTATE\AMPHETAMINE SULFATE\DEXTROAMPHETAMINE SACCHARATE\DEXTROAMPHETAMINE SULFATE
     Indication: Attention deficit hyperactivity disorder
     Dosage: ?          QUANTITY:2 CAPSULE(S);
     Route: 048
     Dates: start: 20210930, end: 20211016
  2. DEXTROAMPHET SACCHARAT, AMPHET ASPARTATE, DEXTROAMPHET SULFATE AND AMP [Suspect]
     Active Substance: AMPHETAMINE ASPARTATE\AMPHETAMINE SULFATE\DEXTROAMPHETAMINE SACCHARATE\DEXTROAMPHETAMINE SULFATE
     Indication: Attention deficit hyperactivity disorder
     Dosage: ?          QUANTITY:1 TABLET(S);
     Route: 048
     Dates: start: 20210930, end: 20211015

REACTIONS (18)
  - Blood pressure increased [None]
  - Dyspnoea [None]
  - Supraventricular tachycardia [None]
  - Tremor [None]
  - Abdominal discomfort [None]
  - Anxiety [None]
  - Vision blurred [None]
  - Pain [None]
  - Bone pain [None]
  - Asthenia [None]
  - Bruxism [None]
  - Diarrhoea [None]
  - Agitation [None]
  - Insomnia [None]
  - Paranoia [None]
  - Anger [None]
  - Disturbance in attention [None]
  - Depressed level of consciousness [None]

NARRATIVE: CASE EVENT DATE: 20211005
